FAERS Safety Report 5019382-5 (Version None)
Quarter: 2006Q2

REPORT INFORMATION
  Report Type: 
  Country: None (occurrence: None)
  Receive Date: 20060530
  Receipt Date: 20060517
  Transmission Date: 20061013
  Serious: Yes (Life-Threatening, Hospitalization, Disabling, Other)
  Sender: FDA-Public Use
  Company Number: 200610962BWH

PATIENT
  Age: 62 Year
  Sex: Male
  Weight: 98 kg

DRUGS (10)
  1. SORAFENIB [Suspect]
     Indication: METASTATIC RENAL CELL CARCINOMA
     Dosage: 400 MG, QD, ORAL
     Route: 048
     Dates: start: 20050808, end: 20060121
  2. AVANDIA [Concomitant]
  3. FLOMAX [Concomitant]
  4. ZOMETA [Concomitant]
  5. PHENERGAN HCL [Concomitant]
  6. ZOFRAN [Concomitant]
  7. PREVACID [Concomitant]
  8. LEVOXYL [Concomitant]
  9. TYLENOL (CAPLET) [Concomitant]
  10. KAYEXALATE [Concomitant]

REACTIONS (30)
  - ALANINE AMINOTRANSFERASE INCREASED [None]
  - AORTIC VALVE INCOMPETENCE [None]
  - ASPARTATE AMINOTRANSFERASE INCREASED [None]
  - BETA HAEMOLYTIC STREPTOCOCCAL INFECTION [None]
  - BLOOD ALBUMIN DECREASED [None]
  - BLOOD CREATINE PHOSPHOKINASE INCREASED [None]
  - BLOOD LACTATE DEHYDROGENASE INCREASED [None]
  - CARDIAC HYPERTROPHY [None]
  - CHOLELITHIASIS [None]
  - CONVULSION [None]
  - DIASTOLIC DYSFUNCTION [None]
  - ELECTROENCEPHALOGRAM ABNORMAL [None]
  - HAEMODIALYSIS [None]
  - HYDRONEPHROSIS [None]
  - INFLUENZA [None]
  - KIDNEY ENLARGEMENT [None]
  - MASTOIDITIS [None]
  - MICROANGIOPATHY [None]
  - MITRAL VALVE INCOMPETENCE [None]
  - OTITIS MEDIA [None]
  - POST STREPTOCOCCAL GLOMERULONEPHRITIS [None]
  - PROTEIN TOTAL DECREASED [None]
  - RENAL FAILURE ACUTE [None]
  - SINUSITIS [None]
  - SUBDURAL HAEMATOMA [None]
  - TENDERNESS [None]
  - THROMBOCYTOPENIA [None]
  - TROPONIN INCREASED [None]
  - TYMPANIC MEMBRANE PERFORATION [None]
  - VISUAL DISTURBANCE [None]
